FAERS Safety Report 4686435-0 (Version None)
Quarter: 2005Q2

REPORT INFORMATION
  Report Type: 
  Country: None (occurrence: None)
  Receive Date: 20050606
  Receipt Date: 20050523
  Transmission Date: 20051028
  Serious: Yes (Hospitalization)
  Sender: FDA-Public Use
  Company Number: FR_050506488

PATIENT
  Age: 55 Year
  Sex: Female

DRUGS (2)
  1. ZYPREXA [Suspect]
     Indication: BIPOLAR DISORDER
     Dosage: 7.5 MG/1 DAY
     Dates: start: 20050321
  2. AMITRIPTYLINE HCL [Concomitant]

REACTIONS (4)
  - GENERALISED OEDEMA [None]
  - HYPERTENSIVE CRISIS [None]
  - HYPOKALAEMIA [None]
  - WEIGHT INCREASED [None]
